FAERS Safety Report 7750703-6 (Version None)
Quarter: 2011Q3

REPORT INFORMATION
  Report Type: 
  Country: None (occurrence: None)
  Receive Date: 20110914
  Receipt Date: 20110906
  Transmission Date: 20111222
  Serious: Yes (Other)
  Sender: FDA-Public Use
  Company Number: CA-JNJFOC-20110904015

PATIENT
  Sex: Female
  Weight: 73.3 kg

DRUGS (1)
  1. REMICADE [Suspect]
     Indication: CROHN'S DISEASE
     Route: 042

REACTIONS (4)
  - FINGER DEFORMITY [None]
  - ARTHRALGIA [None]
  - OEDEMA PERIPHERAL [None]
  - JOINT STIFFNESS [None]
